FAERS Safety Report 9340200 (Version 1)
Quarter: 2013Q2

REPORT INFORMATION
  Report Type: Spontaneous
  Country: IT (occurrence: None)
  Receive Date: 20130605
  Receipt Date: 20130605
  Transmission Date: 20140414
  Serious: Yes (Other)
  Sender: FDA-Public Use
  Company Number: DSM-2013-00503

PATIENT
  Age: 76 Year
  Sex: Female

DRUGS (7)
  1. METOPROLOL TARTRATE (METOPROLOL TARTRATE) (TABLETS) (METOPROLOL TARTRATE) [Suspect]
     Indication: PRODUCT USED FOR UNKNOWN INDICATION
     Route: 048
     Dates: start: 20120329, end: 20130328
  2. OLMESARTAN MEDOXOMIL [Suspect]
     Indication: PRODUCT USED FOR UNKNOWN INDICATION
     Route: 048
     Dates: start: 20120329, end: 20130328
  3. CARVASIN [Suspect]
     Indication: PRODUCT USED FOR UNKNOWN INDICATION
     Route: 048
     Dates: start: 20130328, end: 20130328
  4. AMLODIPINE BESILATE [Suspect]
     Indication: PRODUCT USED FOR UNKNOWN INDICATION
     Route: 048
     Dates: start: 20120329, end: 20130328
  5. XANAX (ALPRAZOLAM) (0.75 MILLIGRAM/MILLITERS, ORAL LIQUID) (ALPRAZOLAM) [Concomitant]
  6. LEXOTAN (BROMAZEPAM) (2.5 MILLIGRAM/MILLILITERS, ORAL LIQUID) (BROMAZEPAM) [Concomitant]
  7. ACETYLSALICYCLIC ACID (ACETYLSALICYCLIC ACID) (ACETYLSALICYCLIC ACID) [Concomitant]

REACTIONS (2)
  - Headache [None]
  - Presyncope [None]
